FAERS Safety Report 4437476-X (Version None)
Quarter: 2004Q3

REPORT INFORMATION
  Report Type: 
  Country: None (occurrence: None)
  Receive Date: 20040827
  Receipt Date: 20040812
  Transmission Date: 20050211
  Serious: Yes (Death, Hospitalization)
  Sender: FDA-Public Use
  Company Number: A02200402470

PATIENT
  Age: 95 Year
  Sex: Female

DRUGS (5)
  1. PLAVIX [Suspect]
     Indication: CEREBROVASCULAR DISORDER
     Dosage: 75 MG OD ORAL
     Route: 048
     Dates: end: 20040718
  2. COZAAR [Concomitant]
  3. VASTAREL (TRIMETAZIDINE HYDROCHLORIDE) [Concomitant]
  4. CORVASAL (MOLSIDOMINE) [Concomitant]
  5. ATARAX [Concomitant]

REACTIONS (6)
  - APHASIA [None]
  - BLOOD PRESSURE INCREASED [None]
  - BRONCHIAL OBSTRUCTION [None]
  - HAEMORRHAGIC STROKE [None]
  - HEADACHE [None]
  - PYREXIA [None]
